FAERS Safety Report 9989232 (Version 1)
Quarter: 2014Q1

REPORT INFORMATION
  Report Type: Spontaneous
  Country: US (occurrence: US)
  Receive Date: 20140310
  Receipt Date: 20140310
  Transmission Date: 20141002
  Serious: Yes (Hospitalization, Other)
  Sender: FDA-Public Use
  Company Number: US-BAYER-2014-034259

PATIENT
  Age: 40 Year
  Sex: Female
  Weight: 129.93 kg

DRUGS (6)
  1. YASMIN [Suspect]
     Indication: DYSFUNCTIONAL UTERINE BLEEDING
  2. ETODOLAC [Concomitant]
     Dosage: 400 MG, UNK
     Route: 048
     Dates: start: 20060511
  3. CEPHALEXIN [Concomitant]
     Dosage: 500 MG, UNK
     Route: 048
     Dates: start: 20060511
  4. LISINOPRIL/HCTZ [Concomitant]
     Dosage: 20/25 EVERY MORNING
     Route: 048
  5. ZOLOFT [Concomitant]
     Dosage: 100 MG 1/2 TABLET EVERY DAY
     Route: 048
  6. XOPENEX [Concomitant]
     Dosage: 2 PUFFS FOUR TIMES DAILY

REACTIONS (2)
  - Phlebitis superficial [Recovered/Resolved]
  - Pulmonary embolism [None]
